FAERS Safety Report 23242989 (Version 1)
Quarter: 2023Q4

REPORT INFORMATION
  Report Type: Other
  Country: CA (occurrence: CA)
  Receive Date: 20231129
  Receipt Date: 20231129
  Transmission Date: 20240109
  Serious: Yes (Other)
  Sender: FDA-Public Use
  Company Number: CA-APOTEX-2023AP017021

PATIENT
  Age: 75 Year
  Sex: Female

DRUGS (1)
  1. LETROZOLE [Suspect]
     Active Substance: LETROZOLE
     Indication: Ovarian cancer stage IV
     Dosage: UNK
     Route: 065

REACTIONS (4)
  - Carbohydrate antigen 125 increased [Unknown]
  - Malignant neoplasm progression [Unknown]
  - Ovarian cancer stage IV [Unknown]
  - Product use in unapproved indication [Unknown]
